FAERS Safety Report 7357115-8 (Version None)
Quarter: 2011Q1

REPORT INFORMATION
  Report Type: 
  Country: None (occurrence: None)
  Receive Date: 20110308
  Receipt Date: 20110223
  Transmission Date: 20110831
  Serious: Yes (Death, Life-Threatening, Hospitalization)
  Sender: FDA-Public Use
  Company Number: 2009001814

PATIENT
  Age: 47 Year
  Sex: Male

DRUGS (23)
  1. DROTAVERINE (DROTAVERINE) [Concomitant]
  2. BACTRIM [Concomitant]
  3. METOCLOPRAMIDE [Concomitant]
  4. BISOPROLOL (BISOPROLOL) [Concomitant]
  5. LIDOCAINE [Concomitant]
  6. FENTANYL [Concomitant]
  7. FUROSEMIDE [Concomitant]
  8. FLUCONAZOLE [Concomitant]
  9. ESOMEPRAZOLE (ESOMEPRAZOLE) [Concomitant]
  10. HYOSCINE HYDROCHLORIDE [Concomitant]
  11. ERLOTINIB (ERLOTINIB) (TABLET) (ERLOTINIB) [Suspect]
     Indication: PANCREATIC CARCINOMA METASTATIC
     Dosage: 100 MG, QD, ORAL
     Route: 048
     Dates: start: 20090526, end: 20090609
  12. ENOXAPARIN SODIUM [Concomitant]
  13. FOLIC ACID [Concomitant]
  14. FERROUS SULFATE TAB [Concomitant]
  15. HALOPERIDOL [Concomitant]
  16. ETAMSYLATE [Concomitant]
  17. DOXEPIN HCL [Concomitant]
  18. SPIRONOLACTONE [Concomitant]
  19. RANITIDINE [Concomitant]
  20. GEMCITABINE [Suspect]
     Indication: PANCREATIC CARCINOMA METASTATIC
     Dosage: 1970 MG, 1XQW, INTRAVENOUS
     Route: 042
     Dates: start: 20090526, end: 20090609
  21. AMLODIPINE [Concomitant]
  22. METRONIDAZOLE [Concomitant]
  23. PARACETAMOL (PARACETAMOL) [Concomitant]

REACTIONS (8)
  - ASCITES [None]
  - INTESTINAL PERFORATION [None]
  - INTESTINAL FISTULA [None]
  - BLOOD POTASSIUM INCREASED [None]
  - HAEMOGLOBIN DECREASED [None]
  - METASTASES TO PERITONEUM [None]
  - C-REACTIVE PROTEIN INCREASED [None]
  - ILEUS [None]
